FAERS Safety Report 24086272 (Version 1)
Quarter: 2024Q3

REPORT INFORMATION
  Report Type: Report from Study
  Country: CA (occurrence: CA)
  Receive Date: 20240712
  Receipt Date: 20240712
  Transmission Date: 20241017
  Serious: Yes (Other)
  Sender: CSL BEHRING
  Company Number: CA-BEH-2024175295

PATIENT
  Age: 52 Year
  Sex: Male
  Weight: 70 kg

DRUGS (9)
  1. HIZENTRA [Suspect]
     Active Substance: HUMAN IMMUNOGLOBULIN G
     Indication: Secondary immunodeficiency
     Dosage: 6 G, QW
     Route: 065
     Dates: start: 20230420
  2. DASATINIB [Concomitant]
     Active Substance: DASATINIB
  3. CALCIUM [Concomitant]
     Active Substance: CALCIUM
  4. DELATESTRYL [Concomitant]
     Active Substance: TESTOSTERONE ENANTHATE
  5. NAPROXEN [Concomitant]
     Active Substance: NAPROXEN
  6. UNSPECIFIED INGREDIENT [Concomitant]
     Active Substance: UNSPECIFIED INGREDIENT
  7. ALENDRONATE [Concomitant]
     Active Substance: ALENDRONATE SODIUM
  8. SPRYCEL [Concomitant]
     Active Substance: DASATINIB
  9. CHOLECALCIFEROL [Concomitant]
     Active Substance: CHOLECALCIFEROL

REACTIONS (1)
  - Arthritis infective [Unknown]
